FAERS Safety Report 9345412 (Version 1)
Quarter: 2013Q2

REPORT INFORMATION
  Report Type: Spontaneous
  Country: CA (occurrence: CA)
  Receive Date: 20130613
  Receipt Date: 20130613
  Transmission Date: 20140414
  Serious: Yes (Disabling)
  Sender: FDA-Public Use
  Company Number: CA-AMGEN-CANSP2013041098

PATIENT
  Age: 83 Year
  Sex: Female

DRUGS (10)
  1. PROLIA [Suspect]
     Indication: PRODUCT USED FOR UNKNOWN INDICATION
     Dosage: UNK UNK, Q6MO
     Route: 058
  2. CALCI CHEW [Concomitant]
  3. COZAAR [Concomitant]
  4. DOXAZOSIN [Concomitant]
  5. FLOVENT [Concomitant]
  6. LIPITOR [Concomitant]
  7. LORAZEPAM [Concomitant]
  8. MAGNESIUM [Concomitant]
  9. TIAZAC                             /00489702/ [Concomitant]
  10. VITAMIN D                          /00107901/ [Concomitant]

REACTIONS (4)
  - Gingival disorder [Recovering/Resolving]
  - Pityriasis rosea [Recovering/Resolving]
  - Cellulitis [Recovering/Resolving]
  - Rash [Recovering/Resolving]
